FAERS Safety Report 6530411-X (Version None)
Quarter: 2010Q1

REPORT INFORMATION
  Report Type: 
  Country: None (occurrence: None)
  Receive Date: 20100106
  Receipt Date: 20100106
  Transmission Date: 20100710
  Serious: Yes (Death, Hospitalization)
  Sender: FDA-Public Use
  Company Number: None

PATIENT
  Age: 44 Year
  Sex: Male
  Weight: 75 kg

DRUGS (2)
  1. NIACIN [Suspect]
     Indication: BLOOD CHOLESTEROL INCREASED
     Dosage: 250 MG ORAL O47
     Route: 048
  2. NEOMYCIN [Suspect]
     Indication: LIVER DISORDER
     Dosage: 1000 MG ORAL 047
     Route: 048

REACTIONS (8)
  - COAGULOPATHY [None]
  - DIALYSIS [None]
  - JAUNDICE [None]
  - MENTAL STATUS CHANGES [None]
  - METABOLIC ACIDOSIS [None]
  - MULTI-ORGAN FAILURE [None]
  - RASH [None]
  - RENAL FAILURE ACUTE [None]
